FAERS Safety Report 7250528-4 (Version None)
Quarter: 2011Q1

REPORT INFORMATION
  Report Type: 
  Country: None (occurrence: None)
  Receive Date: 20110128
  Receipt Date: 20110120
  Transmission Date: 20110831
  Serious: Yes (Hospitalization)
  Sender: FDA-Public Use
  Company Number: PHEH2010US02534

PATIENT
  Sex: Female

DRUGS (3)
  1. IMODIUM [Concomitant]
     Dosage: PRN
  2. EXJADE [Suspect]
     Indication: LYMPHATIC DISORDER
     Dosage: 1000 MG, QD
     Route: 048
  3. EXJADE [Suspect]
     Dosage: 1500 MG, QD
     Route: 048

REACTIONS (5)
  - DIARRHOEA [None]
  - DRUG INEFFECTIVE [None]
  - GALLBLADDER DISORDER [None]
  - FALL [None]
  - EYE DISORDER [None]
